FAERS Safety Report 9539611 (Version 3)
Quarter: 2013Q4

REPORT INFORMATION
  Report Type: Spontaneous
  Country: JP (occurrence: None)
  Receive Date: 20130917
  Receipt Date: 20131126
  Transmission Date: 20140711
  Serious: Yes (Other)
  Sender: FDA-Public Use
  Company Number: ABR_01122_2013

PATIENT
  Age: 77 Year
  Sex: Male

DRUGS (1)
  1. GLIADEL (GLIADEL-CARMUSTINE) 7.7 MG [Suspect]
     Indication: MALIGNANT GLIOMA
     Dosage: INTRACEREBRAL
     Dates: start: 20130816, end: 20130816

REACTIONS (1)
  - Cerebral infarction [None]
